FAERS Safety Report 14962677 (Version 2)
Quarter: 2018Q2

REPORT INFORMATION
  Report Type: Report from Study
  Country: GB (occurrence: GB)
  Receive Date: 20180601
  Receipt Date: 20180621
  Transmission Date: 20180711
  Serious: Yes (Disabling, Other)
  Sender: FDA-Public Use
  Company Number: GB-BIOGEN-2018BI00587038

PATIENT
  Age: 51 Year
  Sex: Female

DRUGS (3)
  1. TRIAMCINOLONE [Concomitant]
     Active Substance: TRIAMCINOLONE
     Indication: PRODUCT USED FOR UNKNOWN INDICATION
     Dosage: 2 MG, UNK
     Route: 065
     Dates: start: 20171122
  2. BETNESOL [Concomitant]
     Active Substance: BETAMETHASONE
     Indication: PRODUCT USED FOR UNKNOWN INDICATION
     Dosage: UNK
     Route: 065
     Dates: start: 20170717
  3. TECFIDERA [Suspect]
     Active Substance: DIMETHYL FUMARATE
     Indication: PRODUCT USED FOR UNKNOWN INDICATION
     Route: 048
     Dates: start: 20151124, end: 20170913

REACTIONS (8)
  - Extensor plantar response [Unknown]
  - Paraesthesia [Unknown]
  - Balance disorder [Unknown]
  - Pollakiuria [Unknown]
  - Grip strength decreased [Unknown]
  - Uveitis [Not Recovered/Not Resolved]
  - Nausea [Unknown]
  - Macular hole [Unknown]

NARRATIVE: CASE EVENT DATE: 20170718
